FAERS Safety Report 5299776-3 (Version None)
Quarter: 2007Q2

REPORT INFORMATION
  Report Type: 
  Country: None (occurrence: None)
  Receive Date: 20070417
  Receipt Date: 20070410
  Transmission Date: 20071010
  Serious: Yes (Other)
  Sender: FDA-Public Use
  Company Number: ES-PFIZER INC-2007028688

PATIENT
  Age: 57 Year
  Sex: Female

DRUGS (1)
  1. AROMASIL [Suspect]
     Indication: BREAST CANCER
     Route: 048

REACTIONS (2)
  - INSOMNIA [None]
  - TENDONITIS [None]
